FAERS Safety Report 12219973 (Version 1)
Quarter: 2016Q1

REPORT INFORMATION
  Report Type: Spontaneous
  Country: US (occurrence: US)
  Receive Date: 20160330
  Receipt Date: 20160330
  Transmission Date: 20160526
  Serious: No
  Sender: FDA-Public Use
  Company Number: US-TEVA-635126USA

PATIENT
  Sex: Male
  Weight: 12.71 kg

DRUGS (1)
  1. CICLOSPORIN [Suspect]
     Active Substance: CYCLOSPORINE
     Route: 065

REACTIONS (2)
  - Product taste abnormal [Unknown]
  - Vomiting [Unknown]
